FAERS Safety Report 7148228-4 (Version None)
Quarter: 2010Q4

REPORT INFORMATION
  Report Type: 
  Country: None (occurrence: None)
  Receive Date: 20101124
  Receipt Date: 20101108
  Transmission Date: 20110411
  Serious: Yes (Life-Threatening)
  Sender: FDA-Public Use
  Company Number: GER/UKI/10/0016614

PATIENT
  Age: 83 Year
  Sex: Female

DRUGS (6)
  1. NAPROXEN [Suspect]
     Indication: MESOTHELIOMA
     Dosage: 500 MG, 2 IN 1 D, ORAL
     Route: 048
     Dates: start: 20101020, end: 20101023
  2. NAPROXEN [Suspect]
     Indication: MUSCULOSKELETAL CHEST PAIN
     Dosage: 500 MG, 2 IN 1 D, ORAL
     Route: 048
     Dates: start: 20101020, end: 20101023
  3. LANSOPRAZOLE [Concomitant]
  4. MORPHINE [Concomitant]
  5. OXYCONTIN [Concomitant]
  6. PREGABALIN [Concomitant]

REACTIONS (9)
  - BLOOD ALBUMIN DECREASED [None]
  - BLOOD ALKALINE PHOSPHATASE INCREASED [None]
  - BLOOD BILIRUBIN INCREASED [None]
  - BLOOD POTASSIUM DECREASED [None]
  - GAMMA-GLUTAMYLTRANSFERASE INCREASED [None]
  - HEPATIC FUNCTION ABNORMAL [None]
  - LIVER FUNCTION TEST ABNORMAL [None]
  - NARCOTIC INTOXICATION [None]
  - RENAL FAILURE ACUTE [None]
